FAERS Safety Report 6904548-7 (Version None)
Quarter: 2010Q3

REPORT INFORMATION
  Report Type: 
  Country: None (occurrence: None)
  Receive Date: 20100804
  Receipt Date: 20090610
  Transmission Date: 20110219
  Serious: No
  Sender: FDA-Public Use
  Company Number: US-PFIZER INC-2009205978

PATIENT
  Sex: Female

DRUGS (5)
  1. LYRICA [Suspect]
  2. IBUPROFEN [Suspect]
  3. HYDROCHLOROTHIAZIDE [Suspect]
  4. NAPROXEN [Suspect]
  5. SKELAXIN [Suspect]

REACTIONS (2)
  - MYALGIA [None]
  - OEDEMA PERIPHERAL [None]
